FAERS Safety Report 8179361-6 (Version None)
Quarter: 2012Q1

REPORT INFORMATION
  Report Type: 
  Country: None (occurrence: None)
  Receive Date: 20120302
  Receipt Date: 20120222
  Transmission Date: 20120608
  Serious: Yes (Hospitalization)
  Sender: FDA-Public Use
  Company Number: DE-JNJFOC-20120211343

PATIENT
  Age: 41 Year
  Sex: Male

DRUGS (6)
  1. XIMOVAN [Concomitant]
     Route: 048
     Dates: start: 20111002, end: 20111013
  2. RISPERDAL [Suspect]
     Indication: PRODUCT USED FOR UNKNOWN INDICATION
     Route: 048
     Dates: start: 20111012
  3. RISPERDAL [Suspect]
     Route: 048
     Dates: start: 20111002, end: 20111011
  4. RISPERDAL [Suspect]
     Route: 048
     Dates: start: 20110925, end: 20111001
  5. LORAZEPAM [Concomitant]
     Route: 048
     Dates: start: 20111008, end: 20111010
  6. LORAZEPAM [Concomitant]
     Route: 048
     Dates: start: 20111006, end: 20111007

REACTIONS (2)
  - DYSKINESIA [None]
  - HOSPITALISATION [None]
